FAERS Safety Report 25708753 (Version 1)
Quarter: 2025Q3

REPORT INFORMATION
  Report Type: Spontaneous
  Country: US (occurrence: US)
  Receive Date: 20250821
  Receipt Date: 20250821
  Transmission Date: 20251021
  Serious: Yes (Other)
  Sender: SANDOZ
  Company Number: US-SANDOZ-SDZ2025US058685

PATIENT
  Sex: Female

DRUGS (1)
  1. ZARXIO [Suspect]
     Active Substance: FILGRASTIM-SNDZ
     Indication: White blood cell count decreased
     Route: 065

REACTIONS (9)
  - Bone pain [Unknown]
  - Weight increased [Unknown]
  - Chills [Unknown]
  - Pyrexia [Unknown]
  - Drug ineffective [Unknown]
  - Product label confusion [Unknown]
  - Product knowledge deficit [Unknown]
  - Device leakage [Unknown]
  - Device malfunction [Unknown]
